FAERS Safety Report 8861815 (Version 1)
Quarter: 2012Q4

REPORT INFORMATION
  Report Type: Spontaneous
  Country: US (occurrence: None)
  Receive Date: 20121026
  Receipt Date: 20121026
  Transmission Date: 20130627
  Serious: Yes (Death)
  Sender: FDA-Public Use
  Company Number: None

PATIENT
  Age: 59 Year
  Sex: Male
  Weight: 156.49 kg

DRUGS (4)
  1. STEROID INJECTION POSSIBLE METHYLPREDNISOLONE [Suspect]
  2. CLONIDINE [Concomitant]
  3. LORTAB [Concomitant]
  4. TRAZADONE [Concomitant]

REACTIONS (1)
  - Hepatic failure [None]
